FAERS Safety Report 9234180 (Version 1)
Quarter: 2013Q2

REPORT INFORMATION
  Report Type: Report from Study
  Country: DE (occurrence: DE)
  Receive Date: 20130416
  Receipt Date: 20130416
  Transmission Date: 20140414
  Serious: Yes (Other)
  Sender: FDA-Public Use
  Company Number: DE-SANOFI-AVENTIS-2013SA038208

PATIENT
  Age: 59 Year
  Sex: Female
  Weight: 48 kg

DRUGS (9)
  1. DOCETAXEL [Suspect]
     Indication: OROPHARYNGEAL CANCER
     Route: 041
     Dates: start: 20110606, end: 20110606
  2. DOCETAXEL [Suspect]
     Indication: OROPHARYNGEAL CANCER
     Route: 041
     Dates: start: 20110718, end: 20110718
  3. CETUXIMAB [Suspect]
     Indication: OROPHARYNGEAL CANCER
     Route: 041
     Dates: start: 20110809, end: 20110809
  4. CETUXIMAB [Suspect]
     Indication: OROPHARYNGEAL CANCER
     Route: 041
     Dates: start: 20110930, end: 20110930
  5. CISPLATIN [Suspect]
     Indication: OROPHARYNGEAL CANCER
     Route: 041
     Dates: start: 20110606, end: 20110606
  6. CISPLATIN [Suspect]
     Indication: OROPHARYNGEAL CANCER
     Route: 041
     Dates: start: 20110718, end: 20110718
  7. 5-FU [Suspect]
     Indication: OROPHARYNGEAL CANCER
     Route: 041
     Dates: start: 20110606
  8. 5-FU [Suspect]
     Indication: OROPHARYNGEAL CANCER
     Route: 041
     Dates: start: 20110718
  9. METAMIZOLE [Concomitant]
     Indication: PAIN
     Route: 048

REACTIONS (1)
  - Osteoradionecrosis [Not Recovered/Not Resolved]
